FAERS Safety Report 9708395 (Version 1)
Quarter: 2013Q4

REPORT INFORMATION
  Report Type: Spontaneous
  Country: CH (occurrence: CH)
  Receive Date: 20131125
  Receipt Date: 20131125
  Transmission Date: 20140711
  Serious: Yes (Other)
  Sender: FDA-Public Use
  Company Number: CH-TEVA-445431ISR

PATIENT
  Sex: 0

DRUGS (8)
  1. PANTOPRAZOLE [Suspect]
     Route: 065
  2. SEROQUEL [Suspect]
     Route: 065
  3. SOLIAN [Suspect]
     Route: 065
  4. XEPLION [Suspect]
     Route: 065
  5. TEMESTA [Suspect]
     Route: 065
  6. TRITTICO RETARD [Suspect]
     Route: 065
  7. FENTANYL TTS [Suspect]
     Route: 065
  8. BISOPROLOL [Suspect]
     Route: 065

REACTIONS (2)
  - Urinary retention [Unknown]
  - Faecaloma [Unknown]
